FAERS Safety Report 4411444-6 (Version None)
Quarter: 2004Q2

REPORT INFORMATION
  Report Type: 
  Country: None (occurrence: None)
  Receive Date: 20040630
  Receipt Date: 20040519
  Transmission Date: 20050107
  Serious: No
  Sender: FDA-Public Use
  Company Number: 04P-163-0261373-00

PATIENT
  Sex: Female
  Weight: 77.1115 kg

DRUGS (9)
  1. HUMIRA [Suspect]
     Indication: RHEUMATOID ARTHRITIS
     Dosage: 40 MG, 1 IN 2 WK, INJECTION
     Dates: start: 20040301
  2. HYDROXYCHOLOQUINE PHOSPHATE [Concomitant]
  3. FOLIC ACID [Concomitant]
  4. ESOMEPRAZOLE [Concomitant]
  5. EFFEXOR XR [Concomitant]
  6. CLONAZEPAM [Concomitant]
  7. PREDNISONE [Concomitant]
  8. TRAZODONE HCL [Concomitant]
  9. LOPERAMIDE HCL [Concomitant]

REACTIONS (1)
  - COUGH [None]
